FAERS Safety Report 7275180-3 (Version None)
Quarter: 2011Q1

REPORT INFORMATION
  Report Type: 
  Country: None (occurrence: None)
  Receive Date: 20110204
  Receipt Date: 20110124
  Transmission Date: 20110831
  Serious: Yes (Hospitalization)
  Sender: FDA-Public Use
  Company Number: PHHY2011DE05505

PATIENT
  Sex: Male
  Weight: 70 kg

DRUGS (7)
  1. LYRICA [Suspect]
     Indication: NEURALGIA
     Dosage: 350 MG, DAILY
     Route: 048
     Dates: start: 20050301, end: 20101222
  2. ZOMETA [Suspect]
     Indication: METASTASES TO BONE
     Dosage: 3.3 MG
     Route: 042
     Dates: start: 20101210, end: 20101222
  3. FERRIC HYDROXIDE [Concomitant]
     Indication: IRON DEFICIENCY
     Dosage: 50 MG, DAILY
     Route: 042
     Dates: start: 20101008, end: 20101222
  4. CELEBREX [Concomitant]
     Indication: INFLAMMATION
     Dosage: 400 MG, DAILY
     Route: 048
     Dates: start: 20050801, end: 20101222
  5. AFINITOR [Suspect]
     Indication: RENAL CELL CARCINOMA
     Dosage: 10 MG/DAY
     Route: 048
     Dates: start: 20100115, end: 20101222
  6. AFINITOR [Suspect]
     Dosage: 10 MG/DAY
     Route: 048
     Dates: start: 20110120
  7. ARANESP [Concomitant]
     Indication: ANAEMIA
     Dosage: 150 UG, DAILY
     Route: 058
     Dates: start: 20100913, end: 20101222

REACTIONS (4)
  - HYPERKALAEMIA [None]
  - RENAL FAILURE ACUTE [None]
  - HYPOCALCAEMIA [None]
  - METASTASES TO BONE [None]
